FAERS Safety Report 21342204 (Version 1)
Quarter: 2022Q3

REPORT INFORMATION
  Report Type: Spontaneous
  Country: DE (occurrence: DE)
  Receive Date: 20220916
  Receipt Date: 20220916
  Transmission Date: 20221027
  Serious: Yes (Hospitalization)
  Sender: FDA-Public Use
  Company Number: None

PATIENT
  Age: 78 Year
  Sex: Male
  Weight: 80 kg

DRUGS (9)
  1. METHOTREXATE SODIUM [Suspect]
     Active Substance: METHOTREXATE SODIUM
     Dosage: 15 MG, EVERY SATURDAY
  2. PREDNISOLONE [Suspect]
     Active Substance: PREDNISOLONE
     Dosage: 65 MG, 1X/DAY
  3. TORSEMIDE [Concomitant]
     Active Substance: TORSEMIDE
     Dosage: 1 DF, 2X/DAY
  4. POTASSIUM [Concomitant]
     Active Substance: POTASSIUM
     Dosage: UNK, 1X/DAY  (POWDER)
  5. PREGABALIN [Concomitant]
     Active Substance: PREGABALIN
     Dosage: UNK, AS NEEDED IN THE NIGHT
  6. PANTOPRAZOLE [Concomitant]
     Active Substance: PANTOPRAZOLE
     Dosage: UNK, 1X/DAY
  7. CHOLECALCIFEROL [Concomitant]
     Active Substance: CHOLECALCIFEROL
     Dosage: UNK, 1X/DAY
  8. METAMIZOLE [Concomitant]
     Active Substance: METAMIZOLE
     Indication: Pain
     Dosage: UNK UNK, AS NEEDED
  9. FOLIC ACID [Concomitant]
     Active Substance: FOLIC ACID
     Dosage: EVERY SUNDAY

REACTIONS (3)
  - Peripheral swelling [Unknown]
  - Erythema [Unknown]
  - Sinus tachycardia [Unknown]

NARRATIVE: CASE EVENT DATE: 20201024
